FAERS Safety Report 13167404 (Version 1)
Quarter: 2017Q1

REPORT INFORMATION
  Report Type: Spontaneous
  Country: US (occurrence: US)
  Receive Date: 20170131
  Receipt Date: 20170131
  Transmission Date: 20170428
  Serious: Yes (Other)
  Sender: FDA-Public Use
  Company Number: None

PATIENT
  Age: 68 Year
  Sex: Male

DRUGS (2)
  1. CEFTRIAXONE 10 GRAM SAGENT [Suspect]
     Active Substance: CEFTRIAXONE
     Route: 042
     Dates: start: 20161004, end: 20161010
  2. CEFTRIAXONE 2 GRAM SAGENT [Suspect]
     Active Substance: CEFTRIAXONE
     Indication: LYME DISEASE
     Route: 042
     Dates: start: 20161004, end: 20161010

REACTIONS (2)
  - Erythema [None]
  - Pruritus generalised [None]

NARRATIVE: CASE EVENT DATE: 20161010
